FAERS Safety Report 15620274 (Version 1)
Quarter: 2018Q4

REPORT INFORMATION
  Report Type: Spontaneous
  Country: GB (occurrence: GB)
  Receive Date: 20181115
  Receipt Date: 20181115
  Transmission Date: 20190205
  Serious: Yes (Other)
  Sender: FDA-Public Use
  Company Number: GB-TEVA-2018-GB-976398

PATIENT
  Age: 27 Year
  Sex: Female
  Weight: 88 kg

DRUGS (2)
  1. ETONOGESTREL [Concomitant]
     Active Substance: ETONOGESTREL
     Dosage: USE AS DIRECTED
     Route: 065
     Dates: start: 20180809, end: 20181006
  2. CO-AMOXICLAV [Suspect]
     Active Substance: AMOXICILLIN\CLAVULANATE POTASSIUM
     Dosage: 500/125MG
     Route: 065
     Dates: start: 20181021

REACTIONS (2)
  - Dermatitis allergic [Recovering/Resolving]
  - Rash macular [Recovering/Resolving]

NARRATIVE: CASE EVENT DATE: 20181021
